FAERS Safety Report 20548487 (Version 1)
Quarter: 2022Q1

REPORT INFORMATION
  Report Type: Spontaneous
  Country: US (occurrence: US)
  Receive Date: 20220303
  Receipt Date: 20220303
  Transmission Date: 20220424
  Serious: No
  Sender: FDA-Public Use
  Company Number: US-PFIZER INC-2020065419

PATIENT
  Age: 48 Year
  Sex: Male
  Weight: 63.5 kg

DRUGS (3)
  1. XANAX [Suspect]
     Active Substance: ALPRAZOLAM
     Indication: Panic disorder
     Dosage: 1 MG, 4X/DAY
  2. XANAX [Suspect]
     Active Substance: ALPRAZOLAM
     Indication: Anxiety
  3. XANAX [Suspect]
     Active Substance: ALPRAZOLAM
     Indication: Stress

REACTIONS (3)
  - Amnesia [Unknown]
  - Sinusitis [Unknown]
  - Fatigue [Unknown]
